FAERS Safety Report 8599428-8 (Version None)
Quarter: 2012Q3

REPORT INFORMATION
  Report Type: 
  Country: None (occurrence: None)
  Receive Date: 20120808
  Receipt Date: 20120808
  Transmission Date: 20120928
  Serious: Yes (Other)
  Sender: FDA-Public Use
  Company Number: None

PATIENT
  Sex: Female
  Weight: 68 kg

DRUGS (5)
  1. NS [Concomitant]
  2. POTASSIUM [Concomitant]
  3. MAGNESIUM [Concomitant]
  4. EMEND [Suspect]
     Indication: BLADDER ADENOCARCINOMA STAGE UNSPECIFIED
     Dosage: 150MG IN 145ML OF NS ONCE IV
     Route: 042
     Dates: start: 20120806, end: 20120806
  5. EMEND [Suspect]
     Indication: PROPHYLAXIS OF NAUSEA AND VOMITING
     Dosage: 150MG IN 145ML OF NS ONCE IV
     Route: 042
     Dates: start: 20120806, end: 20120806

REACTIONS (8)
  - ERYTHEMA [None]
  - FEELING HOT [None]
  - TACHYCARDIA [None]
  - ANXIETY [None]
  - CHEST DISCOMFORT [None]
  - PARAESTHESIA ORAL [None]
  - INFUSION RELATED REACTION [None]
  - NAUSEA [None]
